FAERS Safety Report 5066938-X (Version None)
Quarter: 2006Q3

REPORT INFORMATION
  Report Type: 
  Country: None (occurrence: None)
  Receive Date: 20060726
  Receipt Date: 20060718
  Transmission Date: 20061208
  Serious: Yes (Hospitalization, Other)
  Sender: FDA-Public Use
  Company Number: 227293

PATIENT
  Age: 52 Year
  Sex: Male
  Weight: 98 kg

DRUGS (6)
  1. XOLAIR [Suspect]
     Indication: ASTHMA
     Dosage: 375 MG, Q2W, SUBCUTANEOUS
     Route: 058
     Dates: start: 20060622, end: 20060706
  2. RHINOCORT [Concomitant]
  3. SINGULAIR [Concomitant]
  4. FORADIL [Concomitant]
  5. QVAR 40 [Concomitant]
  6. PROVENTIL (ALBUTEROL/ALBUTEROL SULFATE) [Concomitant]

REACTIONS (1)
  - FACIAL PALSY [None]
